APPROVED DRUG PRODUCT: CEFAZOLIN SODIUM
Active Ingredient: CEFAZOLIN SODIUM
Strength: EQ 3GM BASE/VIAL
Dosage Form/Route: INJECTABLE;INJECTION
Application: A203661 | Product #003
Applicant: QILU ANTIBIOTICS PHARMACEUTICAL CO LTD
Approved: Jan 24, 2024 | RLD: No | RS: No | Type: RX